FAERS Safety Report 19856133 (Version 1)
Quarter: 2021Q3

REPORT INFORMATION
  Report Type: Spontaneous
  Country: FR (occurrence: FR)
  Receive Date: 20210920
  Receipt Date: 20210920
  Transmission Date: 20211014
  Serious: Yes (Congenital Anomaly)
  Sender: FDA-Public Use
  Company Number: FR-TEVA-2021-FR-1953702

PATIENT
  Sex: Male
  Weight: .79 kg

DRUGS (3)
  1. KESTIN 10 MG, COMPRIME PELLICULE [Suspect]
     Active Substance: EBASTINE
     Indication: FOETAL EXPOSURE DURING PREGNANCY
     Dosage: 1 DF
     Route: 064
     Dates: start: 20201215
  2. BISOPROLOL (FUMARATE ACIDE DE) [Suspect]
     Active Substance: BISOPROLOL FUMARATE
     Indication: FOETAL EXPOSURE DURING PREGNANCY
     Dosage: UNSPECIFIED
     Route: 064
     Dates: start: 20210315
  3. AERIUS (DESLORATADINE) [Suspect]
     Active Substance: DESLORATADINE
     Indication: FOETAL EXPOSURE DURING PREGNANCY
     Dosage: UNSPECIFIED
     Route: 064
     Dates: start: 20210401

REACTIONS (1)
  - Talipes [Not Recovered/Not Resolved]

NARRATIVE: CASE EVENT DATE: 20210504
